FAERS Safety Report 5605599-5 (Version None)
Quarter: 2008Q1

REPORT INFORMATION
  Report Type: 
  Country: None (occurrence: None)
  Receive Date: 20080125
  Receipt Date: 20080125
  Transmission Date: 20080703
  Serious: Yes (Hospitalization)
  Sender: FDA-Public Use
  Company Number: None

PATIENT
  Age: 71 Year
  Sex: Female
  Weight: 55.3 kg

DRUGS (1)
  1. DASATINIB 50MG BMS [Suspect]
     Indication: BREAST CANCER
     Dosage: 50MG BID PO
     Route: 048
     Dates: start: 20071212, end: 20080109

REACTIONS (3)
  - ANOREXIA [None]
  - DEHYDRATION [None]
  - NAUSEA [None]
